FAERS Safety Report 5971573-2 (Version None)
Quarter: 2008Q4

REPORT INFORMATION
  Report Type: 
  Country: None (occurrence: None)
  Receive Date: 20081201
  Receipt Date: 20081121
  Transmission Date: 20090506
  Serious: Yes (Hospitalization)
  Sender: FDA-Public Use
  Company Number: CH-JNJFOC-20081104982

PATIENT
  Age: 87 Year
  Sex: Male

DRUGS (9)
  1. DURAGESIC-100 [Suspect]
     Indication: PAIN IN EXTREMITY
     Route: 062
  2. DIGOXIN STREULI [Concomitant]
     Indication: HYPERTENSION
     Route: 048
  3. PRAVASTATIN [Concomitant]
     Indication: HYPERTENSION
     Route: 048
  4. ZOLPIDEM [Concomitant]
     Indication: HYPERTENSION
     Route: 048
  5. SINTROM [Concomitant]
     Indication: HYPERTENSION
     Route: 048
  6. PRADIF [Concomitant]
     Indication: HYPERTENSION
     Route: 048
  7. LASILACTON [Concomitant]
     Indication: HYPERTENSION
     Dosage: 20 MG/50 MG    1/2 TABLET
     Route: 048
  8. COVERSUM [Concomitant]
     Indication: HYPERTENSION
     Route: 048
  9. GAMONIL [Concomitant]
     Indication: DEPRESSION
     Route: 048

REACTIONS (3)
  - PRURITUS [None]
  - RASH PAPULAR [None]
  - TOXIC SKIN ERUPTION [None]
